FAERS Safety Report 4347233-0 (Version None)
Quarter: 2004Q2

REPORT INFORMATION
  Report Type: 
  Country: None (occurrence: None)
  Receive Date: 20040426
  Receipt Date: 20040420
  Transmission Date: 20050107
  Serious: Yes (Other)
  Sender: FDA-Public Use
  Company Number: GB-MERCK-0404GBR00158

PATIENT
  Age: 46 Year
  Sex: Male
  Weight: 103 kg

DRUGS (4)
  1. ASPIRIN [Concomitant]
     Route: 065
  2. INSULIN, ISOPHANE [Concomitant]
     Route: 065
  3. INSULIN, NEUTRAL [Concomitant]
     Indication: DIABETES MELLITUS INSULIN-DEPENDENT
     Route: 065
     Dates: start: 19740101
  4. ZOCOR [Suspect]
     Indication: HYPERCHOLESTEROLAEMIA
     Route: 048
     Dates: start: 20020905, end: 20040310

REACTIONS (1)
  - PAIN IN EXTREMITY [None]
